FAERS Safety Report 7068543-2 (Version None)
Quarter: 2010Q4

REPORT INFORMATION
  Report Type: 
  Country: None (occurrence: None)
  Receive Date: 20101028
  Receipt Date: 20081208
  Transmission Date: 20110411
  Serious: Yes (Other)
  Sender: FDA-Public Use
  Company Number: PHHY2008US37020

PATIENT
  Sex: Female
  Weight: 62 kg

DRUGS (1)
  1. EXJADE [Suspect]
     Dosage: 1250 MG, QD
     Route: 048
     Dates: start: 20081107

REACTIONS (2)
  - BONE MARROW TRANSPLANT [None]
  - RENAL FAILURE CHRONIC [None]
